FAERS Safety Report 16993855 (Version 2)
Quarter: 2019Q4

REPORT INFORMATION
  Report Type: Spontaneous
  Country: FR (occurrence: FR)
  Receive Date: 20191105
  Receipt Date: 20191204
  Transmission Date: 20200122
  Serious: Yes (Disabling, Other)
  Sender: FDA-Public Use
  Company Number: FR-ADVANZ PHARMA-201910001445

PATIENT

DRUGS (14)
  1. LEVOTHYROX [Concomitant]
     Active Substance: LEVOTHYROXINE
     Dosage: UNK
  2. ALPRAZOLAM. [Concomitant]
     Active Substance: ALPRAZOLAM
     Dosage: 50 MG
  3. ROCGEL [Concomitant]
     Dosage: UNK
  4. PREDNISONE. [Concomitant]
     Active Substance: PREDNISONE
     Dosage: 1 MG
  5. PROPANOLOL [Concomitant]
     Active Substance: PROPRANOLOL HYDROCHLORIDE
     Dosage: 160 MG
  6. PSYLLIUM HUSKS [Concomitant]
     Active Substance: PSYLLIUM HUSK
     Dosage: 3.6 G
  7. TRAMADOL. [Concomitant]
     Active Substance: TRAMADOL
     Dosage: 200 MG
  8. HYDROCORTISONE ROUSSEL [Concomitant]
     Active Substance: HYDROCORTISONE
     Indication: SYSTEMIC LUPUS ERYTHEMATOSUS
     Dosage: UNK UNK, QD
  9. HYDROXYCHLOROQUINE SULFATE (AUTHORIZED GENERIC),PLAQUENIL [Suspect]
     Active Substance: HYDROXYCHLOROQUINE SULFATE
     Indication: SYSTEMIC LUPUS ERYTHEMATOSUS
     Dosage: 1 DOSAGE FORM, BID,(1-0-1) 2,TABLETS IN THE MORNING (FILM COATED TABLET)
     Route: 048
     Dates: start: 2013, end: 201812
  10. LAROXYL [Concomitant]
     Active Substance: AMITRIPTYLINE HYDROCHLORIDE
     Dosage: 40 MILLIGRAM PER MILLILITRE
     Route: 065
  11. FUROSEMIDE. [Concomitant]
     Active Substance: FUROSEMIDE
     Dosage: 40 MG
  12. ESOMEPRAZOLE. [Concomitant]
     Active Substance: ESOMEPRAZOLE MAGNESIUM
     Dosage: 40 MG
  13. SPASFON [Concomitant]
     Dosage: UNK
  14. HYDROCORTISONE ROUSSEL [Concomitant]
     Active Substance: HYDROCORTISONE
     Indication: FIBROMYALGIA

REACTIONS (4)
  - Impaired driving ability [Unknown]
  - Blindness [Not Recovered/Not Resolved]
  - Loss of personal independence in daily activities [Unknown]
  - Maculopathy [Not Recovered/Not Resolved]

NARRATIVE: CASE EVENT DATE: 201812
